FAERS Safety Report 6749140-2 (Version None)
Quarter: 2010Q2

REPORT INFORMATION
  Report Type: 
  Country: None (occurrence: None)
  Receive Date: 20100601
  Receipt Date: 20100521
  Transmission Date: 20101027
  Serious: Yes (Other)
  Sender: FDA-Public Use
  Company Number: US-BAYER-201021779NA

PATIENT
  Sex: Female

DRUGS (3)
  1. BETASERON [Suspect]
     Indication: DRUG USE FOR UNKNOWN INDICATION
     Route: 058
     Dates: start: 20030101, end: 20040101
  2. COPAXONE [Concomitant]
  3. AVONEX [Concomitant]

REACTIONS (3)
  - HYPERTENSION [None]
  - INJECTION SITE REACTION [None]
  - PETIT MAL EPILEPSY [None]
